FAERS Safety Report 7807837-7 (Version None)
Quarter: 2011Q4

REPORT INFORMATION
  Report Type: 
  Country: None (occurrence: None)
  Receive Date: 20111011
  Receipt Date: 20110930
  Transmission Date: 20120403
  Serious: Yes (Hospitalization)
  Sender: FDA-Public Use
  Company Number: GB-GILEAD-2011-0044546

PATIENT

DRUGS (9)
  1. RANOLAZINE [Suspect]
     Dosage: 375 MG, BID
  2. RAMIPRIL [Concomitant]
  3. PLAVIX [Concomitant]
  4. ISOSORBIDE DINITRATE [Concomitant]
     Dosage: 20 MG, QD
  5. RANOLAZINE [Suspect]
     Dosage: 500 MG, BID
  6. NICORANDIL [Concomitant]
     Dosage: 20 MG, QD
  7. RANOLAZINE [Suspect]
     Indication: ANGINA UNSTABLE
     Dosage: 375 MG, BID
     Dates: start: 20110808
  8. BISOPROLOL [Concomitant]
  9. NITROGLYCERIN [Concomitant]

REACTIONS (7)
  - CHEST PAIN [None]
  - MALAISE [None]
  - HOT FLUSH [None]
  - AMNESIA [None]
  - NAUSEA [None]
  - HYPOTENSION [None]
  - DIZZINESS [None]
